FAERS Safety Report 6993861-3 (Version None)
Quarter: 2010Q3

REPORT INFORMATION
  Report Type: 
  Country: None (occurrence: None)
  Receive Date: 20100917
  Receipt Date: 20070510
  Transmission Date: 20110219
  Serious: Yes (Hospitalization, Other)
  Sender: FDA-Public Use
  Company Number: US-ASTRAZENECA-2006UW07944

PATIENT
  Age: 41 Year
  Sex: Female
  Weight: 99.3 kg

DRUGS (7)
  1. SEROQUEL [Suspect]
     Indication: BIPOLAR DISORDER
     Route: 048
     Dates: start: 20020101
  2. SEROQUEL [Suspect]
     Indication: DEPRESSION
     Route: 048
     Dates: start: 20020101
  3. SEROQUEL [Suspect]
     Dosage: 200 MG HS, 200 MG BID
     Route: 048
     Dates: start: 20040623
  4. SEROQUEL [Suspect]
     Dosage: 200 MG HS, 200 MG BID
     Route: 048
     Dates: start: 20040623
  5. ZYPREXA [Suspect]
     Dosage: 100 MG HS, 5 MG HS
     Dates: start: 19981121
  6. METFORMIN [Concomitant]
     Dates: start: 20051010
  7. LAMICTAL [Concomitant]
     Dates: start: 20040623, end: 20050301

REACTIONS (3)
  - DIABETES MELLITUS [None]
  - DIABETES MELLITUS INADEQUATE CONTROL [None]
  - HYPERGLYCAEMIA [None]
